FAERS Safety Report 20040604 (Version 1)
Quarter: 2021Q4

REPORT INFORMATION
  Report Type: Spontaneous
  Country: US (occurrence: None)
  Receive Date: 20211107
  Receipt Date: 20211107
  Transmission Date: 20220303
  Serious: No
  Sender: FDA-Public Use
  Company Number: None

PATIENT
  Age: 66 Year
  Sex: Female
  Weight: 96.75 kg

DRUGS (7)
  1. DILTIAZEM HYDROCHLORIDE [Suspect]
     Active Substance: DILTIAZEM HYDROCHLORIDE
     Indication: Atrial fibrillation
     Dosage: OTHER QUANTITY : 1 CAPSULE(S);?FREQUENCY : DAILY;?
     Route: 048
  2. LOSARTAN 10MG [Concomitant]
  3. FLECAINIDE [Concomitant]
     Active Substance: FLECAINIDE
  4. EPLERENONE [Concomitant]
     Active Substance: EPLERENONE
  5. RIVAROXABAN [Concomitant]
     Active Substance: RIVAROXABAN
  6. VITAMINS [Concomitant]
     Active Substance: VITAMINS
  7. VIT D [Concomitant]

REACTIONS (1)
  - Bone loss [None]

NARRATIVE: CASE EVENT DATE: 20210212
